FAERS Safety Report 4982153-X (Version None)
Quarter: 2006Q2

REPORT INFORMATION
  Report Type: 
  Country: None (occurrence: None)
  Receive Date: 20060419
  Receipt Date: 20060329
  Transmission Date: 20061013
  Serious: Yes (Other)
  Sender: FDA-Public Use
  Company Number: US200603007000

PATIENT
  Age: 21 Year
  Sex: Female

DRUGS (2)
  1. CYMBALTA [Suspect]
     Dosage: 30 MG
     Dates: start: 20060105, end: 20060323
  2. FLEXERIL [Concomitant]

REACTIONS (4)
  - DYSPNOEA [None]
  - GRAND MAL CONVULSION [None]
  - MUSCLE SPASMS [None]
  - TREMOR [None]
